FAERS Safety Report 11907098 (Version 1)
Quarter: 2016Q1

REPORT INFORMATION
  Report Type: Spontaneous
  Country: US (occurrence: US)
  Receive Date: 20160111
  Receipt Date: 20160111
  Transmission Date: 20160526
  Serious: No
  Sender: FDA-Public Use
  Company Number: US-ENDO PHARMACEUTICALS INC.-2015-000761

PATIENT
  Age: 54 Year
  Sex: Female

DRUGS (2)
  1. PERCOCET [Suspect]
     Active Substance: ACETAMINOPHEN\OXYCODONE HYDROCHLORIDE
     Indication: PRODUCT USED FOR UNKNOWN INDICATION
     Route: 065
  2. HUMIRA [Suspect]
     Active Substance: ADALIMUMAB
     Indication: CROHN^S DISEASE
     Route: 065
     Dates: start: 20141203

REACTIONS (7)
  - Nervousness [Unknown]
  - Crohn^s disease [Unknown]
  - Fatigue [Recovered/Resolved]
  - Weight decreased [Unknown]
  - Lower respiratory tract infection [Not Recovered/Not Resolved]
  - Dehydration [Unknown]
  - Retching [Unknown]

NARRATIVE: CASE EVENT DATE: 20141203
